FAERS Safety Report 5774856-4 (Version None)
Quarter: 2008Q2

REPORT INFORMATION
  Report Type: 
  Country: None (occurrence: None)
  Receive Date: 20080617
  Receipt Date: 20080604
  Transmission Date: 20081010
  Serious: Yes (Other)
  Sender: FDA-Public Use
  Company Number: JP-ELI_LILLY_AND_COMPANY-JP200806001380

PATIENT
  Age: 72 Year
  Sex: Female

DRUGS (2)
  1. GEMZAR [Suspect]
     Indication: PANCREATIC CARCINOMA
     Route: 042
  2. FLUOROURACIL [Concomitant]
     Indication: PANCREATIC CARCINOMA
     Route: 013

REACTIONS (4)
  - ASCITES [None]
  - CAPILLARY LEAK SYNDROME [None]
  - GENERALISED OEDEMA [None]
  - HYPOVOLAEMIC SHOCK [None]
